FAERS Safety Report 24404478 (Version 1)
Quarter: 2024Q4

REPORT INFORMATION
  Report Type: Spontaneous
  Country: US (occurrence: US)
  Receive Date: 20241007
  Receipt Date: 20241007
  Transmission Date: 20250114
  Serious: No
  Sender: ELI LILLY AND CO
  Company Number: US-ELI_LILLY_AND_COMPANY-US202410003700

PATIENT
  Age: 56 Year
  Sex: Female

DRUGS (12)
  1. MOUNJARO [Suspect]
     Active Substance: TIRZEPATIDE
     Indication: Glycosylated haemoglobin increased
     Dosage: 5 MG, UNKNOWN
     Route: 058
     Dates: start: 202402
  2. MOUNJARO [Suspect]
     Active Substance: TIRZEPATIDE
     Indication: Glycosylated haemoglobin increased
     Dosage: 5 MG, UNKNOWN
     Route: 058
     Dates: start: 202402
  3. MOUNJARO [Suspect]
     Active Substance: TIRZEPATIDE
     Indication: Glycosylated haemoglobin increased
     Dosage: 5 MG, UNKNOWN
     Route: 058
     Dates: start: 202402
  4. MOUNJARO [Suspect]
     Active Substance: TIRZEPATIDE
     Indication: Glycosylated haemoglobin increased
     Dosage: 5 MG, UNKNOWN
     Route: 058
     Dates: start: 202402
  5. MOUNJARO [Suspect]
     Active Substance: TIRZEPATIDE
     Indication: Renal impairment
  6. MOUNJARO [Suspect]
     Active Substance: TIRZEPATIDE
     Indication: Renal impairment
  7. MOUNJARO [Suspect]
     Active Substance: TIRZEPATIDE
     Indication: Renal impairment
  8. MOUNJARO [Suspect]
     Active Substance: TIRZEPATIDE
     Indication: Renal impairment
  9. MOUNJARO [Suspect]
     Active Substance: TIRZEPATIDE
     Indication: Diabetes mellitus
  10. MOUNJARO [Suspect]
     Active Substance: TIRZEPATIDE
     Indication: Diabetes mellitus
  11. MOUNJARO [Suspect]
     Active Substance: TIRZEPATIDE
     Indication: Diabetes mellitus
  12. MOUNJARO [Suspect]
     Active Substance: TIRZEPATIDE
     Indication: Diabetes mellitus

REACTIONS (2)
  - Blood pressure increased [Unknown]
  - Chest pain [Unknown]

NARRATIVE: CASE EVENT DATE: 20241003
